FAERS Safety Report 8837299 (Version 2)
Quarter: 2013Q1

REPORT INFORMATION
  Report Type: Spontaneous
  Country: US (occurrence: US)
  Receive Date: 20121012
  Receipt Date: 20130102
  Transmission Date: 20140127
  Serious: No
  Sender: FDA-Public Use
  Company Number: US-009507513-1209USA008067

PATIENT
  Sex: Male

DRUGS (1)
  1. PEGINTRON [Suspect]
     Indication: HEPATITIS C
     Dosage: ^HIGHEST DOSE^ ONCE A WEEK
     Dates: start: 201110, end: 201205

REACTIONS (1)
  - Hepatitis C [Not Recovered/Not Resolved]
